FAERS Safety Report 16624447 (Version 1)
Quarter: 2019Q3

REPORT INFORMATION
  Report Type: Spontaneous
  Country: US (occurrence: US)
  Receive Date: 20190611
  Receipt Date: 20190611
  Transmission Date: 20191004
  Serious: No
  Sender: FDA-Public Use
  Company Number: None

PATIENT
  Age: 73 Year
  Sex: Female

DRUGS (1)
  1. REPATHA [Suspect]
     Active Substance: EVOLOCUMAB
     Dates: start: 20190502

REACTIONS (6)
  - Insomnia [None]
  - Pruritus [None]
  - Rash [None]
  - Constipation [None]
  - Diarrhoea [None]
  - Fatigue [None]

NARRATIVE: CASE EVENT DATE: 20190515
